FAERS Safety Report 6511712-8 (Version None)
Quarter: 2009Q4

REPORT INFORMATION
  Report Type: 
  Country: None (occurrence: None)
  Receive Date: 20091222
  Receipt Date: 20090413
  Transmission Date: 20100525
  Serious: No
  Sender: FDA-Public Use
  Company Number: US-ASTRAZENECA-2009UW09134

PATIENT
  Age: 59 Year
  Sex: Male
  Weight: 83.9 kg

DRUGS (2)
  1. CRESTOR [Suspect]
     Route: 048
  2. NIASPAN [Concomitant]
     Indication: BLOOD CHOLESTEROL

REACTIONS (1)
  - COUGH [None]
